FAERS Safety Report 5607046-6 (Version None)
Quarter: 2008Q1

REPORT INFORMATION
  Report Type: 
  Country: None (occurrence: None)
  Receive Date: 20080129
  Receipt Date: 20080117
  Transmission Date: 20080703
  Serious: Yes (Other)
  Sender: FDA-Public Use
  Company Number: US-PFIZER INC-2008008097

PATIENT
  Sex: Female
  Weight: 63.5 kg

DRUGS (3)
  1. CHANTIX [Suspect]
     Indication: SMOKING CESSATION THERAPY
     Dates: start: 20071120, end: 20080106
  2. LEXAPRO [Concomitant]
     Indication: DEPRESSION
  3. CONTRACEPTIVE, UNSPECIFIED [Concomitant]

REACTIONS (5)
  - DEPRESSION [None]
  - DYSPNOEA [None]
  - MALAISE [None]
  - NAUSEA [None]
  - PANIC ATTACK [None]
